FAERS Safety Report 4400795-7 (Version None)
Quarter: 2004Q3

REPORT INFORMATION
  Report Type: 
  Country: None (occurrence: None)
  Receive Date: 20040907
  Receipt Date: 20030611
  Transmission Date: 20050211
  Serious: No
  Sender: FDA-Public Use
  Company Number: US-BRISTOL-MYERS SQUIBB COMPANY-12298345

PATIENT
  Age: 88 Year
  Sex: Male
  Weight: 82 kg

DRUGS (12)
  1. COUMADIN [Suspect]
     Indication: CARDIAC OPERATION
     Dosage: DOSE VALUE:  2.5 MG ALTERNATING DAYS WITH 5 MG
     Route: 048
  2. VERAPAMIL [Concomitant]
  3. LIPITOR [Concomitant]
  4. LANOXIN [Concomitant]
  5. TRIAMTERENE AND HYDROCHLOROTHIAZIDE [Concomitant]
  6. PACERONE [Concomitant]
  7. FLOMAX [Concomitant]
  8. POTASSIUM CHLORIDE [Concomitant]
  9. ZINC [Concomitant]
  10. BETA CAROTENE [Concomitant]
  11. VITAMIN E [Concomitant]
  12. VITAMIN C [Concomitant]

REACTIONS (3)
  - ECCHYMOSIS [None]
  - HAEMORRHAGE [None]
  - SKIN DISCOLOURATION [None]
